FAERS Safety Report 15629851 (Version 1)
Quarter: 2018Q4

REPORT INFORMATION
  Report Type: Spontaneous
  Country: CN (occurrence: CN)
  Receive Date: 20181117
  Receipt Date: 20181117
  Transmission Date: 20190205
  Serious: Yes (Other)
  Sender: FDA-Public Use
  Company Number: PHHY2018CN155064

PATIENT
  Age: 29 Year
  Sex: Male

DRUGS (2)
  1. GEMCITABINE [Suspect]
     Active Substance: GEMCITABINE\GEMCITABINE HYDROCHLORIDE
     Indication: CHOLANGIOCARCINOMA
     Dosage: 1000 MG/M2, UNK (DAY 1 AND 8, EVERY 21 DAYS)
     Route: 065
  2. LAPATINIB [Suspect]
     Active Substance: LAPATINIB
     Indication: CHOLANGIOCARCINOMA
     Dosage: 1250 MG, QD
     Route: 048

REACTIONS (8)
  - Product use in unapproved indication [Unknown]
  - Metastases to liver [Unknown]
  - Hilar lymphadenopathy [Unknown]
  - Cholangiocarcinoma [Unknown]
  - Treatment failure [Unknown]
  - Portal vein thrombosis [Unknown]
  - Malignant neoplasm progression [Unknown]
  - Retroperitoneal lymphadenopathy [Unknown]
